FAERS Safety Report 4423933-9 (Version None)
Quarter: 2004Q3

REPORT INFORMATION
  Report Type: 
  Country: None (occurrence: None)
  Receive Date: 20040805
  Receipt Date: 20040723
  Transmission Date: 20050211
  Serious: Yes (Life-Threatening, Hospitalization, Disabling)
  Sender: FDA-Public Use
  Company Number: 2004225487GB

PATIENT
  Age: 71 Year
  Sex: Female

DRUGS (1)
  1. DEPO-MEDRONE (METHYLPREDNISOLONE) SUSPENSION, STERILE [Suspect]
     Indication: RHEUMATOID ARTHRITIS
     Dosage: INTRAMUSCULAR
     Route: 030

REACTIONS (6)
  - ANAPHYLACTIC REACTION [None]
  - DIZZINESS [None]
  - DYSPNOEA [None]
  - HYPERHIDROSIS [None]
  - NAUSEA [None]
  - PULMONARY OEDEMA [None]
